FAERS Safety Report 9513452 (Version 1)
Quarter: 2013Q3

REPORT INFORMATION
  Report Type: Spontaneous
  Country: US (occurrence: US)
  Receive Date: 20130910
  Receipt Date: 20130910
  Transmission Date: 20140515
  Serious: No
  Sender: FDA-Public Use
  Company Number: US-TARO-2013P1001679

PATIENT
  Age: 72 Year
  Sex: Female
  Weight: 44 kg

DRUGS (13)
  1. WARFARIN SODIUM TABLETS USP 5MG [Suspect]
     Indication: ATRIAL FIBRILLATION
     Route: 048
     Dates: start: 2011
  2. WARFARIN SODIUM TABLETS USP 5MG [Suspect]
     Indication: ATRIAL FIBRILLATION
     Route: 048
     Dates: start: 20130126
  3. COQ10 [Concomitant]
     Dates: start: 201212
  4. ATORVASTATIN [Concomitant]
  5. AZILECT [Concomitant]
  6. AZILECT [Concomitant]
     Dates: start: 201212
  7. CARBIDOPA/LEVODOPA 25 [Concomitant]
  8. CLONAZEPAM [Concomitant]
  9. MIRTAZAPINE [Concomitant]
  10. DIGOXIN [Concomitant]
  11. VITAMINS D 2000 [Concomitant]
  12. MAGNESIUM 200 [Concomitant]
  13. B COMPLEX WITH VITAMIN C [Concomitant]

REACTIONS (1)
  - International normalised ratio decreased [Recovered/Resolved]
